FAERS Safety Report 7515707-7 (Version None)
Quarter: 2011Q2

REPORT INFORMATION
  Report Type: 
  Country: None (occurrence: None)
  Receive Date: 20110601
  Receipt Date: 20100803
  Transmission Date: 20111010
  Serious: Yes (Other)
  Sender: FDA-Public Use
  Company Number: US-PFIZER INC-2010010988

PATIENT
  Sex: Male

DRUGS (5)
  1. CHANTIX [Suspect]
     Indication: SMOKING CESSATION THERAPY
     Dosage: STARTING PACK; CONTINUING PACK
     Dates: start: 20081125, end: 20090301
  2. ALBUTEROL SULFATE AUTOHALER [Concomitant]
     Indication: CHRONIC OBSTRUCTIVE PULMONARY DISEASE
     Dosage: UNK
     Dates: start: 20000101
  3. LASIX [Concomitant]
     Indication: CORONARY ARTERY DISEASE
     Dosage: UNK
     Dates: start: 20000101, end: 20100101
  4. OXYCODONE HCL AND ACETAMINOPHEN [Concomitant]
     Indication: PAIN
     Dosage: UNK
     Dates: start: 20080801, end: 20090101
  5. MICARDIS HCT [Concomitant]
     Indication: HYPERTENSION
     Dosage: UNK
     Dates: start: 20081101, end: 20100101

REACTIONS (4)
  - SUICIDE ATTEMPT [None]
  - INSOMNIA [None]
  - ANXIETY [None]
  - DEPRESSION [None]
